FAERS Safety Report 4450333-8 (Version None)
Quarter: 2004Q3

REPORT INFORMATION
  Report Type: 
  Country: None (occurrence: None)
  Receive Date: 20040914
  Receipt Date: 20040903
  Transmission Date: 20050211
  Serious: Yes (Death, Life-Threatening, Hospitalization)
  Sender: FDA-Public Use
  Company Number: STA-AE-04-MTX-342

PATIENT
  Age: 87 Year
  Sex: Female

DRUGS (2)
  1. RHEUMATREX [Suspect]
     Indication: RHEUMATOID ARTHRITIS
     Dosage: 4 MG 1X PER 1 WK, ORAL
     Route: 048
     Dates: start: 20040701, end: 20040701
  2. PREDNISOLONE [Concomitant]

REACTIONS (2)
  - CRYPTOGENIC ORGANIZING PNEUMONIA [None]
  - SEPSIS [None]
